FAERS Safety Report 17732353 (Version 3)
Quarter: 2020Q2

REPORT INFORMATION
  Report Type: Spontaneous
  Country: CA (occurrence: CA)
  Receive Date: 20200501
  Receipt Date: 20200514
  Transmission Date: 20200714
  Serious: Yes (Other)
  Sender: FDA-Public Use
  Company Number: CA-PFIZER INC-2020110557

PATIENT
  Age: 59 Year
  Sex: Female

DRUGS (5)
  1. CORTISONE [Concomitant]
     Active Substance: CORTISONE
     Dosage: 4 TABLETS, DAILY
     Route: 065
  2. XELJANZ [Suspect]
     Active Substance: TOFACITINIB CITRATE
     Indication: RHEUMATOID ARTHRITIS
     Dosage: 5 MG, TWICE IN A DAY
     Route: 048
     Dates: start: 20200311, end: 202003
  3. XELJANZ [Suspect]
     Active Substance: TOFACITINIB CITRATE
     Dosage: 5 MG, TWICE IN A DAY
     Route: 048
     Dates: start: 20200331, end: 20200331
  4. HYDROXYCHLOROQUINE [Concomitant]
     Active Substance: HYDROXYCHLOROQUINE
     Dosage: UNK
     Route: 065
  5. LEFLUNOMIDE. [Concomitant]
     Active Substance: LEFLUNOMIDE
     Dosage: UNK
     Route: 065

REACTIONS (14)
  - Therapeutic product effect incomplete [Unknown]
  - Urine odour abnormal [Recovered/Resolved]
  - Dyspnoea [Unknown]
  - Dysuria [Recovered/Resolved]
  - Feeling hot [Unknown]
  - Haematochezia [Unknown]
  - Headache [Recovered/Resolved]
  - Pulmonary pain [Unknown]
  - Cough [Unknown]
  - Urinary tract infection [Recovered/Resolved]
  - Pain [Unknown]
  - Nausea [Unknown]
  - Pyrexia [Unknown]
  - Muscle spasms [Unknown]

NARRATIVE: CASE EVENT DATE: 2020
